FAERS Safety Report 8369200-2 (Version None)
Quarter: 2012Q2

REPORT INFORMATION
  Report Type: 
  Country: None (occurrence: None)
  Receive Date: 20120518
  Receipt Date: 20120511
  Transmission Date: 20120825
  Serious: Yes (Hospitalization)
  Sender: FDA-Public Use
  Company Number: US-BAYER-2012-048217

PATIENT
  Age: 25 Year
  Sex: Female
  Weight: 74.376 kg

DRUGS (4)
  1. IBUPROFEN [Concomitant]
     Indication: CHEST PAIN
  2. METHOCARBAMOL [Concomitant]
     Indication: CHEST PAIN
  3. YAZ [Suspect]
  4. ROBAXIN [Concomitant]
     Indication: MUSCULOSKELETAL CHEST PAIN
     Dosage: 750 MG, UNK
     Dates: start: 20090114

REACTIONS (1)
  - PULMONARY EMBOLISM [None]
